FAERS Safety Report 12659748 (Version 1)
Quarter: 2016Q3

REPORT INFORMATION
  Report Type: Spontaneous
  Country: CA (occurrence: CA)
  Receive Date: 20160817
  Receipt Date: 20160817
  Transmission Date: 20161109
  Serious: Yes (Other)
  Sender: FDA-Public Use
  Company Number: PHHY2016CA111734

PATIENT
  Age: 34 Month
  Sex: Female

DRUGS (1)
  1. OMEPRAZOLE SANDOZ [Suspect]
     Active Substance: OMEPRAZOLE
     Indication: GASTROINTESTINAL DISORDER
     Dosage: 10 MG, BID
     Route: 065
     Dates: end: 2016

REACTIONS (5)
  - Autism spectrum disorder [Unknown]
  - Communication disorder [Recovering/Resolving]
  - Speech disorder [Recovering/Resolving]
  - Off label use [Unknown]
  - Antisocial behaviour [Recovering/Resolving]
